FAERS Safety Report 5283448-5 (Version None)
Quarter: 2007Q2

REPORT INFORMATION
  Report Type: 
  Country: None (occurrence: None)
  Receive Date: 20070402
  Receipt Date: 20070320
  Transmission Date: 20071010
  Serious: Yes (Other)
  Sender: FDA-Public Use
  Company Number: US-JNJFOC-20070101685

PATIENT
  Sex: Male
  Weight: 69.4 kg

DRUGS (7)
  1. REMICADE [Suspect]
     Dosage: 5 MG/KG
     Route: 042
  2. REMICADE [Suspect]
     Dosage: 5 MG/KG
     Route: 042
  3. REMICADE [Suspect]
     Indication: CROHN'S DISEASE
     Route: 042
  4. COLAZOL [Concomitant]
     Indication: CROHN'S DISEASE
  5. MERCAPTOPURINE [Concomitant]
     Indication: CROHN'S DISEASE
  6. NEXIUM [Concomitant]
     Indication: CROHN'S DISEASE
  7. VITAMINS [Concomitant]
     Indication: ROUTINE HEALTH MAINTENANCE

REACTIONS (2)
  - CEREBRAL DISORDER [None]
  - HEADACHE [None]
